FAERS Safety Report 8001847-5 (Version None)
Quarter: 2011Q4

REPORT INFORMATION
  Report Type: 
  Country: None (occurrence: None)
  Receive Date: 20111123
  Receipt Date: 20110930
  Transmission Date: 20120403
  Serious: No
  Sender: FDA-Public Use
  Company Number: 336263

PATIENT
  Age: 59 Year
  Sex: Female

DRUGS (4)
  1. ONGLYZA [Suspect]
  2. GLIMEPIRIDE [Suspect]
     Dosage: 1 TAB, QD, ORAL
     Route: 048
  3. METFORMIN HCL [Suspect]
     Indication: TYPE 2 DIABETES MELLITUS
     Dosage: 1000 MG, BID
  4. VICTOZA [Suspect]
     Indication: TYPE 2 DIABETES MELLITUS
     Dosage: 1.2 MG, QD, SUBCUTANEOUS
     Route: 058

REACTIONS (3)
  - NAUSEA [None]
  - HOT FLUSH [None]
  - BLOOD GLUCOSE DECREASED [None]
